FAERS Safety Report 17839552 (Version 1)
Quarter: 2020Q2

REPORT INFORMATION
  Report Type: Spontaneous
  Country: US (occurrence: US)
  Receive Date: 20200528
  Receipt Date: 20200528
  Transmission Date: 20200714
  Serious: Yes (Hospitalization, Other)
  Sender: FDA-Public Use
  Company Number: None

PATIENT
  Age: 94 Year
  Sex: Male
  Weight: 51.71 kg

DRUGS (1)
  1. REMDESIVIR 100MG/20ML [Suspect]
     Active Substance: REMDESIVIR
     Route: 042
     Dates: start: 20200521, end: 20200523

REACTIONS (1)
  - Thrombocytopenia [None]

NARRATIVE: CASE EVENT DATE: 20200523
